FAERS Safety Report 13352533 (Version 2)
Quarter: 2018Q1

REPORT INFORMATION
  Report Type: Spontaneous
  Country: US (occurrence: US)
  Receive Date: 20170320
  Receipt Date: 20180312
  Transmission Date: 20180508
  Serious: No
  Sender: FDA-Public Use
  Company Number: US-ALLERGAN-1701542US

PATIENT
  Sex: Female

DRUGS (1)
  1. OXYTROL FOR WOMEN [Suspect]
     Active Substance: OXYBUTYNIN
     Indication: HYPERTONIC BLADDER
     Dosage: 1 PATCH
     Route: 062
     Dates: start: 201701, end: 201701

REACTIONS (2)
  - Incorrect drug administration duration [Unknown]
  - Drug ineffective [Unknown]

NARRATIVE: CASE EVENT DATE: 201701
